FAERS Safety Report 22363380 (Version 2)
Quarter: 2023Q2

REPORT INFORMATION
  Report Type: Report from Study
  Country: JP (occurrence: JP)
  Receive Date: 20230525
  Receipt Date: 20230608
  Transmission Date: 20230721
  Serious: Yes (Death, Hospitalization)
  Sender: FDA-Public Use
  Company Number: JP-ABBVIE-5178249

PATIENT
  Age: 82 Year
  Sex: Female

DRUGS (19)
  1. VENCLEXTA [Suspect]
     Active Substance: VENETOCLAX
     Indication: Acute myeloid leukaemia
     Dosage: 50 MILLIGRAM?LAST ADMINISTRATION DATE AUG 2022
     Route: 048
     Dates: start: 20220821
  2. VENCLEXTA [Suspect]
     Active Substance: VENETOCLAX
     Indication: Acute myeloid leukaemia
     Dosage: 200 MILLIGRAM
     Route: 048
     Dates: start: 20220824, end: 20220912
  3. VENCLEXTA [Suspect]
     Active Substance: VENETOCLAX
     Indication: Acute myeloid leukaemia
     Dosage: 10 MILLIGRAM
     Route: 048
     Dates: start: 20220819, end: 20220819
  4. VENCLEXTA [Suspect]
     Active Substance: VENETOCLAX
     Indication: Acute myeloid leukaemia
     Dosage: 100 MILLIGRAM
     Route: 048
     Dates: start: 20220823, end: 20220823
  5. VENCLEXTA [Suspect]
     Active Substance: VENETOCLAX
     Indication: Acute myeloid leukaemia
     Dosage: 50 MILLIGRAM
     Route: 048
     Dates: start: 20221101, end: 20221201
  6. VENCLEXTA [Suspect]
     Active Substance: VENETOCLAX
     Indication: Acute myeloid leukaemia
     Dosage: 50 MILLIGRAM
     Route: 048
     Dates: start: 20221008, end: 20221028
  7. VENCLEXTA [Suspect]
     Active Substance: VENETOCLAX
     Indication: Acute myeloid leukaemia
     Dosage: 50 MILLIGRAM
     Route: 048
     Dates: start: 20220822, end: 20220822
  8. VENCLEXTA [Suspect]
     Active Substance: VENETOCLAX
     Indication: Acute myeloid leukaemia
     Dosage: 50 MILLIGRAM
     Route: 048
     Dates: start: 20221202, end: 20230104
  9. VENCLEXTA [Suspect]
     Active Substance: VENETOCLAX
     Indication: Acute myeloid leukaemia
     Dosage: 50 MILLIGRAM?LAST ADMIN DATE: 2022
     Route: 048
     Dates: start: 20220930
  10. VENCLEXTA [Suspect]
     Active Substance: VENETOCLAX
     Indication: Acute myeloid leukaemia
     Dosage: 20 MILLIGRAM
     Route: 048
     Dates: start: 20220820, end: 20220820
  11. VENCLEXTA [Suspect]
     Active Substance: VENETOCLAX
     Indication: Acute myeloid leukaemia
     Dosage: 50 MILLIGRAM
     Route: 048
     Dates: start: 20230105, end: 20230111
  12. AZACITIDINE [Concomitant]
     Active Substance: AZACITIDINE
     Indication: Acute myeloid leukaemia
     Dosage: 100 MG/M2
     Route: 065
     Dates: start: 20221101, end: 20221107
  13. AZACITIDINE [Concomitant]
     Active Substance: AZACITIDINE
     Indication: Acute myeloid leukaemia
     Dosage: 120 MG/M2,DURATION TEXT: 12 CYCLES
     Route: 065
     Dates: start: 20220822, end: 20220827
  14. AZACITIDINE [Concomitant]
     Active Substance: AZACITIDINE
     Indication: Acute myeloid leukaemia
     Dosage: 50 MG/M2
     Dates: start: 20221205, end: 20230111
  15. AZACITIDINE [Concomitant]
     Active Substance: AZACITIDINE
     Indication: Acute myeloid leukaemia
     Dosage: 120 MG/M2
     Route: 065
     Dates: start: 20221008, end: 20221014
  16. AZACITIDINE [Concomitant]
     Active Substance: AZACITIDINE
     Indication: Acute myeloid leukaemia
     Dosage: 100 MG/M2
     Route: 065
     Dates: start: 20220930, end: 20221006
  17. AZACITIDINE [Concomitant]
     Active Substance: AZACITIDINE
     Indication: Acute myeloid leukaemia
     Dosage: 75 MG/M2?LAST ADMIN DATE; DEC 2022
     Route: 065
     Dates: start: 20221202
  18. AZACITIDINE [Concomitant]
     Active Substance: AZACITIDINE
     Indication: Acute myeloid leukaemia
     Dosage: 100 MG/M2?LAST ADMIN DATE; AUG 2022
     Route: 065
     Dates: start: 20220819
  19. ITRACONAZOLE [Concomitant]
     Active Substance: ITRACONAZOLE
     Indication: Infection prophylaxis
     Route: 065
     Dates: start: 20220817, end: 20230425

REACTIONS (5)
  - Acute myeloid leukaemia [Fatal]
  - Blood test abnormal [Unknown]
  - Cystitis [Recovered/Resolved]
  - Cystitis [Recovered/Resolved]
  - Cystitis [Recovered/Resolved]

NARRATIVE: CASE EVENT DATE: 20220902
